FAERS Safety Report 4917699-3 (Version None)
Quarter: 2006Q1

REPORT INFORMATION
  Report Type: 
  Country: None (occurrence: None)
  Receive Date: 20060221
  Receipt Date: 20060130
  Transmission Date: 20060701
  Serious: Yes (Hospitalization)
  Sender: FDA-Public Use
  Company Number: JP-ROCHE-434526

PATIENT
  Age: 72 Year
  Sex: Female
  Weight: 60 kg

DRUGS (7)
  1. TAMIFLU [Suspect]
     Route: 048
     Dates: start: 20060123, end: 20060123
  2. TAMIFLU [Suspect]
     Route: 048
     Dates: start: 20060124, end: 20060127
  3. TAMIFLU [Suspect]
     Route: 048
     Dates: start: 20060128, end: 20060128
  4. GASTER D [Concomitant]
     Route: 048
     Dates: start: 20051217
  5. DIOVAN [Concomitant]
     Route: 048
     Dates: start: 20051223, end: 20060105
  6. ADALAT [Concomitant]
     Route: 048
  7. PHENOBAL [Concomitant]
     Route: 048
     Dates: start: 20051217

REACTIONS (3)
  - HEPATIC ENZYME INCREASED [None]
  - HEPATIC FUNCTION ABNORMAL [None]
  - RASH [None]
